FAERS Safety Report 19747189 (Version 1)
Quarter: 2021Q3

REPORT INFORMATION
  Report Type: Other
  Country: CA (occurrence: CA)
  Receive Date: 20210826
  Receipt Date: 20210826
  Transmission Date: 20211014
  Serious: Yes (Life-Threatening, Hospitalization, Other)
  Sender: FDA-Public Use
  Company Number: CA-ROCHE-2522573

PATIENT
  Age: 14 Year
  Sex: Female

DRUGS (10)
  1. XOLAIR [Suspect]
     Active Substance: OMALIZUMAB
     Dosage: 375 MG, BIW
     Route: 058
     Dates: start: 20191218
  2. XOLAIR [Suspect]
     Active Substance: OMALIZUMAB
     Dosage: 375 MG, BIW
     Route: 058
  3. VENTOLIN [Concomitant]
     Active Substance: ALBUTEROL SULFATE
     Indication: BRONCHIAL DISORDER
     Dosage: 2 DF, QID
     Route: 055
  4. BREO ELLIPTA [Concomitant]
     Active Substance: FLUTICASONE FUROATE\VILANTEROL TRIFENATATE
     Indication: BLOOD CORTICOSTERONE ABNORMAL
     Dosage: 1 DF, QD
     Route: 055
  5. XOLAIR [Suspect]
     Active Substance: OMALIZUMAB
     Indication: ASTHMA
     Dosage: 375 MG, BIW
     Route: 058
     Dates: start: 20191121
  6. SYMBICORT [Concomitant]
     Active Substance: BUDESONIDE\FORMOTEROL FUMARATE DIHYDRATE
     Indication: BLOOD CORTICOSTERONE ABNORMAL
     Dosage: 1 DF, BID
     Route: 055
  7. SINGULAIR [Concomitant]
     Active Substance: MONTELUKAST SODIUM
     Indication: PRODUCT USED FOR UNKNOWN INDICATION
     Dosage: UNK
     Route: 065
  8. XOLAIR [Suspect]
     Active Substance: OMALIZUMAB
     Dosage: 375 MG, BIW
     Route: 058
     Dates: start: 20191206
  9. XOLAIR [Suspect]
     Active Substance: OMALIZUMAB
     Dosage: 375 MG, BIW
     Route: 058
     Dates: start: 20210728
  10. XOLAIR [Suspect]
     Active Substance: OMALIZUMAB
     Dosage: 375 MG, BIW
     Route: 058

REACTIONS (18)
  - Back pain [Unknown]
  - Urinary tract infection [Unknown]
  - Depression [Unknown]
  - Urinary retention [Unknown]
  - Accident [Unknown]
  - Neurogenic shock [Unknown]
  - Nausea [Unknown]
  - Pain [Unknown]
  - Injection site bruising [Recovered/Resolved]
  - Mental disorder [Unknown]
  - Migraine [Recovered/Resolved]
  - Blood pressure decreased [Unknown]
  - Vomiting [Unknown]
  - Adrenal disorder [Unknown]
  - Renal pain [Unknown]
  - Neck injury [Unknown]
  - Suicidal ideation [Unknown]
  - Headache [Unknown]

NARRATIVE: CASE EVENT DATE: 20191122
